FAERS Safety Report 7028764-1 (Version None)
Quarter: 2010Q4

REPORT INFORMATION
  Report Type: 
  Country: None (occurrence: None)
  Receive Date: 20101004
  Receipt Date: 20101004
  Transmission Date: 20110411
  Serious: Yes (Hospitalization)
  Sender: FDA-Public Use
  Company Number: None

PATIENT
  Age: 57 Year
  Sex: Male
  Weight: 78 kg

DRUGS (13)
  1. METFORMIN HCL [Suspect]
     Indication: TYPE 2 DIABETES MELLITUS
     Dosage: 500MG EVERY 8 HOURS PO (DURATION: A FEW YEARS)
     Route: 048
  2. ATIVAN [Concomitant]
  3. MILK OF MAGNESIA TAB [Concomitant]
  4. ACETAMINOPHEN [Concomitant]
  5. ABILIFY [Concomitant]
  6. VASOTEC [Concomitant]
  7. ASPIRIN [Concomitant]
  8. SIMVASTATIN [Concomitant]
  9. ZOLPIDEM TARTRATE [Concomitant]
  10. DEPAKOTE [Concomitant]
  11. FAMOTIDINE [Concomitant]
  12. LEVETIRACETAM [Concomitant]
  13. LAMOTRIGINE [Suspect]

REACTIONS (1)
  - RENAL FAILURE ACUTE [None]
